FAERS Safety Report 8515457-4 (Version None)
Quarter: 2012Q3

REPORT INFORMATION
  Report Type: 
  Country: None (occurrence: None)
  Receive Date: 20120705
  Receipt Date: 20120625
  Transmission Date: 20120928
  Serious: Yes (Other)
  Sender: FDA-Public Use
  Company Number: 2009JP000641

PATIENT
  Age: 26 Year
  Sex: Female

DRUGS (48)
  1. HALCION [Concomitant]
  2. ALLEGRA (FEXOFENADINE HYDROCHLORIDE) TABLET [Concomitant]
  3. TAMIFLU (OSELTAMIVIR PHOSPHATE) CAPSULE [Concomitant]
  4. MUCOSTA (REBAMIPIDE) TABLET [Concomitant]
  5. MAGLAX (MAGNESIUM OXIDE) [Concomitant]
  6. PROCYLIN (BERAPROST SODIUM) [Concomitant]
  7. FLOMOX (CEFCAPENE PIVOXIL HYDROCHLORIDE) [Concomitant]
  8. LODOPIN (ZOTEPINE) FORMULATION UNKNOWN [Concomitant]
  9. HIRNAMIN /00038602/ (LEVOMEPROMAZINE MALEATE) [Concomitant]
  10. JZOLOFT (SERTRALINE HYDROCHLORIDE) TABLET [Concomitant]
  11. TAKEPRON (LANSOPRAZOLE) ORODISPERSIBLE CR TABLET [Concomitant]
  12. WARFARIN SODIUM [Concomitant]
  13. PRAVASTATIN [Concomitant]
  14. GASTER (FAMOTIDINE) ORODISPERSIBLE CR TABLET [Concomitant]
  15. HUSCODE (CHLORPHENAMINE MALEATE, DIHYDROCODEINE PHOSPHATE, METHYLEPHED [Concomitant]
  16. MUCODYNE (CARBOCISTEINE) [Concomitant]
  17. PATANOL (OLOPATADINE HYDROCHLORIDE) EYE DROP [Concomitant]
  18. BONALON (ALENDRONATE SODIUM) TABLET [Concomitant]
  19. MICARDIS [Concomitant]
  20. ITRIZOLE (ITRACONAZOLE) SOLUTION (ORAL) [Concomitant]
  21. HUSTAZOL (CLOPERASTINE HYDROCHLORIDE) [Concomitant]
  22. ZYPREXA [Concomitant]
  23. TACROLIMUS [Suspect]
     Indication: LUPUS NEPHRITIS
     Dosage: 3 MG  /D, ORAL, 2.5 MG,.D, ORAL, 2MG, /D, ORAL, 3 MG,  /D, ORAL
     Route: 048
     Dates: start: 20100727
  24. TACROLIMUS [Suspect]
     Indication: LUPUS NEPHRITIS
     Dosage: 3 MG  /D, ORAL, 2.5 MG,.D, ORAL, 2MG, /D, ORAL, 3 MG,  /D, ORAL
     Route: 048
     Dates: start: 20100617, end: 20120626
  25. TACROLIMUS [Suspect]
     Indication: LUPUS NEPHRITIS
     Dosage: 3 MG  /D, ORAL, 2.5 MG,.D, ORAL, 2MG, /D, ORAL, 3 MG,  /D, ORAL
     Route: 048
     Dates: start: 20070528, end: 20100604
  26. TACROLIMUS [Suspect]
     Indication: LUPUS NEPHRITIS
     Dosage: 3 MG  /D, ORAL, 2.5 MG,.D, ORAL, 2MG, /D, ORAL, 3 MG,  /D, ORAL
     Route: 048
     Dates: start: 20100605, end: 20100616
  27. CELLCEPT [Concomitant]
  28. BUFFERIN [Concomitant]
  29. ACECOL (TEMOCAPRIL HYDROCHLORIDE) [Concomitant]
  30. DEPAS (ETIZOLAM) [Concomitant]
  31. LOXONIN (LOXOPROFEN SODIUM) [Concomitant]
  32. FLUMETHOLON (FLUOROMETHOLONE) EYE DROP [Concomitant]
  33. BUSCOPAN (HYOSCINE BUTYLBROMIDE) TABLET [Concomitant]
  34. PREDNISOLONE [Suspect]
     Indication: LUPUS NEPHRITIS
     Dosage: SEE IMAGE
     Route: 048
     Dates: start: 20100511, end: 20100603
  35. PREDNISOLONE [Suspect]
     Indication: LUPUS NEPHRITIS
     Dosage: SEE IMAGE
     Route: 048
     Dates: start: 20100727, end: 20100809
  36. PREDNISOLONE [Suspect]
     Indication: LUPUS NEPHRITIS
     Dosage: SEE IMAGE
     Route: 048
     Dates: start: 20100824, end: 20100927
  37. PREDNISOLONE [Suspect]
     Indication: LUPUS NEPHRITIS
     Dosage: SEE IMAGE
     Route: 048
     Dates: start: 20100928
  38. PREDNISOLONE [Suspect]
     Indication: LUPUS NEPHRITIS
     Dosage: SEE IMAGE
     Route: 048
     Dates: start: 20100810, end: 20100823
  39. PREDNISOLONE [Suspect]
     Indication: LUPUS NEPHRITIS
     Dosage: SEE IMAGE
     Route: 048
     Dates: start: 20080428, end: 20100510
  40. PREDNISOLONE [Suspect]
     Indication: LUPUS NEPHRITIS
     Dosage: SEE IMAGE
     Route: 048
     Dates: start: 20080324, end: 20080428
  41. PREDNISOLONE [Suspect]
     Indication: LUPUS NEPHRITIS
     Dosage: SEE IMAGE
     Route: 048
     Dates: start: 20100628, end: 20100712
  42. PREDNISOLONE [Suspect]
     Indication: LUPUS NEPHRITIS
     Dosage: SEE IMAGE
     Route: 048
     Dates: start: 20100713, end: 20100726
  43. PREDNISOLONE [Suspect]
     Indication: LUPUS NEPHRITIS
     Dosage: SEE IMAGE
     Route: 048
     Dates: end: 20120324
  44. PREDNISOLONE [Suspect]
     Indication: LUPUS NEPHRITIS
     Dosage: SEE IMAGE
     Route: 048
     Dates: start: 20100618, end: 20100627
  45. PREDNISOLONE [Suspect]
     Indication: LUPUS NEPHRITIS
     Dosage: SEE IMAGE
     Route: 048
     Dates: start: 20100604, end: 20100617
  46. FERROMIA (FERROUS SODIUM CITRATE) [Concomitant]
  47. LORAZEPAM [Concomitant]
  48. LIPITOR [Concomitant]

REACTIONS (12)
  - PULMONARY HYPERTENSION [None]
  - CONJUNCTIVITIS ALLERGIC [None]
  - GASTROENTERITIS [None]
  - INSOMNIA [None]
  - MANIA [None]
  - RHINITIS ALLERGIC [None]
  - INFLUENZA [None]
  - IMMUNOSUPPRESSANT DRUG LEVEL INCREASED [None]
  - GINGIVITIS [None]
  - IRON DEFICIENCY ANAEMIA [None]
  - BRONCHITIS [None]
  - NASOPHARYNGITIS [None]
